FAERS Safety Report 17456475 (Version 4)
Quarter: 2020Q1

REPORT INFORMATION
  Report Type: Spontaneous
  Country: US (occurrence: US)
  Receive Date: 20200225
  Receipt Date: 20200312
  Transmission Date: 20200409
  Serious: No
  Sender: FDA-Public Use
  Company Number: US-PFIZER INC-2020080910

PATIENT
  Age: 45 Year
  Sex: Female

DRUGS (1)
  1. XELJANZ [Suspect]
     Active Substance: TOFACITINIB CITRATE
     Indication: PSORIASIS
     Dosage: 5 MG, 1X/DAY

REACTIONS (6)
  - Migraine [Unknown]
  - Raynaud^s phenomenon [Unknown]
  - Product use in unapproved indication [Unknown]
  - Intentional product misuse [Unknown]
  - Off label use [Unknown]
  - Drug effective for unapproved indication [Unknown]
